FAERS Safety Report 18544431 (Version 1)
Quarter: 2020Q4

REPORT INFORMATION
  Report Type: Report from Study
  Country: RO (occurrence: RO)
  Receive Date: 20201125
  Receipt Date: 20201125
  Transmission Date: 20210114
  Serious: Yes (Disabling)
  Sender: FDA-Public Use
  Company Number: RO-GILEAD-2020-0504994

PATIENT
  Age: 84 Year
  Sex: Female

DRUGS (8)
  1. LEDIPASVIR/SOFOSBUVIR [Suspect]
     Active Substance: LEDIPASVIR\SOFOSBUVIR
     Indication: HEPATITIS C
     Dosage: 1 DOSAGE FORM, QD
     Route: 048
     Dates: start: 20200820, end: 20201112
  2. ENTECAVIR. [Concomitant]
     Active Substance: ENTECAVIR
  3. TERTENSIF [Concomitant]
     Active Substance: INDAPAMIDE
  4. CONCOR [Concomitant]
     Active Substance: BISOPROLOL FUMARATE
  5. LEDIPASVIR/SOFOSBUVIR [Suspect]
     Active Substance: LEDIPASVIR\SOFOSBUVIR
     Indication: HEPATIC CIRRHOSIS
  6. PREDUCTAL [Concomitant]
     Active Substance: TRIMETAZIDINE DIHYDROCHLORIDE
  7. URSOFALK [Concomitant]
     Active Substance: URSODIOL
  8. ONBREZ [Concomitant]
     Active Substance: INDACATEROL

REACTIONS (5)
  - Pyrexia [Recovered/Resolved]
  - Movement disorder [Not Recovered/Not Resolved]
  - Nasopharyngitis [Recovered/Resolved]
  - Malaise [Not Recovered/Not Resolved]
  - Asthenia [Not Recovered/Not Resolved]

NARRATIVE: CASE EVENT DATE: 202010
